FAERS Safety Report 4796779-X (Version None)
Quarter: 2005Q4

REPORT INFORMATION
  Report Type: 
  Country: None (occurrence: None)
  Receive Date: 20051013
  Receipt Date: 20051006
  Transmission Date: 20060501
  Serious: Yes (Other)
  Sender: FDA-Public Use
  Company Number: 200518955GDDC

PATIENT
  Age: 64 Year
  Sex: Male

DRUGS (14)
  1. NASACORT AQ [Suspect]
     Route: 045
  2. FLOVENT [Suspect]
     Indication: CHRONIC OBSTRUCTIVE PULMONARY DISEASE
     Dosage: DOSE: 500-1000
     Route: 055
  3. VENTOLIN [Concomitant]
     Indication: CHRONIC OBSTRUCTIVE PULMONARY DISEASE
     Route: 055
  4. SPIRIVA [Concomitant]
     Indication: CHRONIC OBSTRUCTIVE PULMONARY DISEASE
     Route: 055
     Dates: start: 20050701
  5. UNIPHYL [Concomitant]
     Indication: CHRONIC OBSTRUCTIVE PULMONARY DISEASE
     Route: 048
  6. ADALAT [Concomitant]
     Indication: HYPERTENSION
     Route: 048
  7. ALLOPURINOL [Concomitant]
     Indication: BLOOD URIC ACID INCREASED
     Route: 048
  8. VASOTEC [Concomitant]
     Indication: HYPERTENSION
     Route: 048
  9. ARALEN [Concomitant]
     Route: 048
     Dates: start: 20050820
  10. TRUSOPT [Concomitant]
     Indication: GLAUCOMA
     Route: 047
  11. XALATAN [Concomitant]
     Indication: GLAUCOMA
     Route: 047
  12. PREDNISOLONE EYE DROPS [Concomitant]
     Indication: CORNEAL TRANSPLANT
     Route: 047
     Dates: start: 20050808
  13. OXEZE [Concomitant]
     Indication: CHRONIC OBSTRUCTIVE PULMONARY DISEASE
     Route: 055
  14. ALPHAGAN [Concomitant]
     Indication: INTRAOCULAR PRESSURE INCREASED
     Route: 047
     Dates: start: 20050808

REACTIONS (2)
  - CORNEAL TRANSPLANT [None]
  - INTRAOCULAR PRESSURE INCREASED [None]
